FAERS Safety Report 12159286 (Version 2)
Quarter: 2017Q1

REPORT INFORMATION
  Report Type: Spontaneous
  Country: US (occurrence: US)
  Receive Date: 20160308
  Receipt Date: 20170207
  Transmission Date: 20170428
  Serious: No
  Sender: FDA-Public Use
  Company Number: US-PFIZER INC-2016082950

PATIENT
  Sex: Female

DRUGS (12)
  1. MORPHINE SULFATE. [Suspect]
     Active Substance: MORPHINE SULFATE
     Dosage: UNK
  2. BACLOFEN. [Suspect]
     Active Substance: BACLOFEN
     Dosage: UNK
  3. ROBAXIN [Suspect]
     Active Substance: METHOCARBAMOL
     Dosage: UNK
  4. METHADONE [Suspect]
     Active Substance: METHADONE HYDROCHLORIDE
     Dosage: UNK
  5. TYLENOL WITH CODEINE [Suspect]
     Active Substance: ACETAMINOPHEN\CODEINE PHOSPHATE
     Dosage: UNK
  6. SOMA [Suspect]
     Active Substance: CARISOPRODOL
     Dosage: UNK
  7. ALEVE [Suspect]
     Active Substance: NAPROXEN SODIUM
     Dosage: UNK
  8. NAPROXEN. [Suspect]
     Active Substance: NAPROXEN
     Dosage: UNK
  9. TRAMADOL. [Suspect]
     Active Substance: TRAMADOL
     Dosage: UNK
  10. BUPRENORPHINE. [Suspect]
     Active Substance: BUPRENORPHINE
     Dosage: UNK
  11. ULTRACET [Suspect]
     Active Substance: ACETAMINOPHEN\TRAMADOL HYDROCHLORIDE
     Dosage: UNK
  12. DILAUDID [Suspect]
     Active Substance: HYDROMORPHONE HYDROCHLORIDE
     Dosage: UNK

REACTIONS (1)
  - Drug hypersensitivity [Not Recovered/Not Resolved]
